FAERS Safety Report 5243257-X (Version None)
Quarter: 2007Q1

REPORT INFORMATION
  Report Type: 
  Country: None (occurrence: None)
  Receive Date: 20070221
  Receipt Date: 20070209
  Transmission Date: 20070707
  Serious: Yes (Other)
  Sender: FDA-Public Use
  Company Number: CA-PFIZER INC-2007010944

PATIENT
  Age: 50 Year
  Sex: Female

DRUGS (6)
  1. NEURONTIN [Suspect]
     Indication: HYPOAESTHESIA
     Route: 048
  2. NEURONTIN [Suspect]
     Indication: NEURALGIA
  3. NEURONTIN [Suspect]
     Indication: NEUROPATHY
  4. LYRICA [Suspect]
     Indication: HYPOAESTHESIA
     Dosage: DAILY DOSE:225MG
     Route: 048
  5. LYRICA [Suspect]
     Indication: NEURALGIA
  6. LYRICA [Suspect]
     Indication: NEUROPATHY

REACTIONS (3)
  - FEELING COLD [None]
  - HYPOAESTHESIA ORAL [None]
  - MASKED FACIES [None]
